FAERS Safety Report 11570004 (Version 2)
Quarter: 2016Q1

REPORT INFORMATION
  Report Type: Spontaneous
  Country: US (occurrence: US)
  Receive Date: 20150929
  Receipt Date: 20160205
  Transmission Date: 20160525
  Serious: No
  Sender: FDA-Public Use
  Company Number: US-PFIZER INC-2015086221

PATIENT
  Age: 69 Year
  Sex: Female

DRUGS (2)
  1. IBRANCE [Suspect]
     Active Substance: PALBOCICLIB
     Indication: BREAST CANCER STAGE IV
     Dosage: 125 MG, CYCLIC (DAILY, 21 DAYS ON X 7 OFF)/ (3 WKS ON; 1 OFF)
     Route: 048
     Dates: start: 20150313, end: 20150617
  2. FEMARA [Concomitant]
     Active Substance: LETROZOLE
     Indication: BREAST CANCER
     Dosage: 2.5 MG, DAILY
     Route: 048
     Dates: start: 20150313, end: 20150617

REACTIONS (2)
  - Malaise [Unknown]
  - Vomiting [Recovered/Resolved]
